FAERS Safety Report 12001914 (Version 1)
Quarter: 2016Q1

REPORT INFORMATION
  Report Type: Report from Study
  Country: JP (occurrence: JP)
  Receive Date: 20160204
  Receipt Date: 20160204
  Transmission Date: 20160526
  Serious: Yes (Hospitalization)
  Sender: FDA-Public Use
  Company Number: JP-SA-2016SA012868

PATIENT
  Age: 60 Year
  Sex: Male
  Weight: 63 kg

DRUGS (11)
  1. ELPLAT [Suspect]
     Active Substance: OXALIPLATIN
     Indication: GASTRIC CANCER
  2. OXYCODONE HYDROCHLORIDE. [Concomitant]
     Active Substance: OXYCODONE HYDROCHLORIDE
     Route: 048
     Dates: start: 20151117
  3. TAZOBACTAM/PIPERACILLIN [Concomitant]
  4. MORPHINE SULFATE. [Concomitant]
     Active Substance: MORPHINE SULFATE
     Dosage: 10MG MIXED FLUID DOSE:25 CC/HR
     Route: 042
     Dates: start: 20160109, end: 20160118
  5. TAS-118 [Suspect]
     Active Substance: INVESTIGATIONAL PRODUCT
     Indication: GASTRIC CANCER
     Dosage: FORM: GRANULE
     Route: 048
     Dates: start: 20151020, end: 20160105
  6. ESOMEPRAZOLE MAGNESIUM TRIHYDRATE [Concomitant]
     Active Substance: ESOMEPRAZOLE MAGNESIUM
     Route: 048
     Dates: start: 20151017
  7. WINUF PERI [Concomitant]
     Dosage: 1085 ML DOSE:40 CC/HR
     Route: 042
     Dates: start: 20160109, end: 20160116
  8. TARGIN [Concomitant]
     Active Substance: NALOXONE HYDROCHLORIDE\OXYCODONE HYDROCHLORIDE
     Dosage: 10/5MG
     Route: 065
     Dates: start: 20160118
  9. ELPLAT [Suspect]
     Active Substance: OXALIPLATIN
     Indication: GASTRIC CANCER
     Dosage: FREQUENCY: ONCE IN 2 WEEKS
     Route: 048
     Dates: start: 20151020
  10. LEVOFLOXACIN. [Concomitant]
     Active Substance: LEVOFLOXACIN
     Route: 042
     Dates: start: 20160113, end: 20160119
  11. PARAMACET [Concomitant]
     Active Substance: ACETAMINOPHEN\TRAMADOL
     Dates: start: 20151017

REACTIONS (5)
  - Decreased appetite [Unknown]
  - Diarrhoea [Recovered/Resolved]
  - Vomiting [Unknown]
  - Enteritis [Recovered/Resolved]
  - Abdominal pain [Recovering/Resolving]

NARRATIVE: CASE EVENT DATE: 20160105
